FAERS Safety Report 5023736-0 (Version None)
Quarter: 2006Q2

REPORT INFORMATION
  Report Type: 
  Country: None (occurrence: None)
  Receive Date: 20060428
  Receipt Date: 20060214
  Transmission Date: 20061013
  Serious: Yes (Other)
  Sender: FDA-Public Use
  Company Number: US-2006-001446

PATIENT
  Age: 67 Year
  Sex: Male
  Weight: 87 kg

DRUGS (5)
  1. LEUKINE [Suspect]
     Indication: CHEMOTHERAPY CYTOKINE PROPHYLAXIS
     Dosage: 250 UG/M2, 1X/DAY, SUBCUTANEOUS
     Route: 058
     Dates: start: 20060125, end: 20060125
  2. GEMZAR [Concomitant]
  3. FLONASE [Concomitant]
  4. PREDNISONE [Concomitant]
  5. ROBAXIN [Concomitant]

REACTIONS (2)
  - BRONCHOSPASM [None]
  - TACHYCARDIA [None]
